FAERS Safety Report 20086551 (Version 2)
Quarter: 2021Q4

REPORT INFORMATION
  Report Type: Spontaneous
  Country: DE (occurrence: DE)
  Receive Date: 20211118
  Receipt Date: 20211201
  Transmission Date: 20220303
  Serious: Yes (Other)
  Sender: FDA-Public Use
  Company Number: None

PATIENT
  Age: 67 Year
  Sex: Male
  Weight: 58 kg

DRUGS (1)
  1. CETIRIZINE [Suspect]
     Active Substance: CETIRIZINE HYDROCHLORIDE
     Indication: Mite allergy
     Dosage: 1-2 TABLETS DAILY
     Route: 048
     Dates: start: 20191128, end: 20210414

REACTIONS (2)
  - Prostate cancer recurrent [Recovered/Resolved with Sequelae]
  - Prostatic specific antigen increased [Recovered/Resolved with Sequelae]
